APPROVED DRUG PRODUCT: HYDROCORTISONE
Active Ingredient: HYDROCORTISONE
Strength: 5MG
Dosage Form/Route: TABLET;ORAL
Application: A217881 | Product #001 | TE Code: AB
Applicant: NOVITIUM PHARMA LLC
Approved: May 2, 2025 | RLD: No | RS: No | Type: RX